FAERS Safety Report 25934840 (Version 2)
Quarter: 2025Q4

REPORT INFORMATION
  Report Type: Spontaneous
  Country: US (occurrence: US)
  Receive Date: 20251017
  Receipt Date: 20251024
  Transmission Date: 20260117
  Serious: No
  Sender: Haleon PLC
  Company Number: US-HALEON-2267975

PATIENT
  Age: 40 Year
  Sex: Male

DRUGS (1)
  1. NICORETTE ORIGINAL [Suspect]
     Active Substance: NICOTINE
     Indication: Smoking cessation therapy
     Dates: start: 20250927

REACTIONS (1)
  - Drug effect less than expected [Not Recovered/Not Resolved]
